FAERS Safety Report 12629497 (Version 2)
Quarter: 2016Q3

REPORT INFORMATION
  Report Type: Spontaneous
  Country: US (occurrence: US)
  Receive Date: 20160808
  Receipt Date: 20160829
  Transmission Date: 20161109
  Serious: Yes (Death)
  Sender: FDA-Public Use
  Company Number: US-TAIHO ONCOLOGY INC-EU-2016-01885

PATIENT
  Age: 68 Year
  Sex: Male

DRUGS (17)
  1. POTASSIUM CHLORIDE. [Concomitant]
     Active Substance: POTASSIUM CHLORIDE
     Dosage: NI
  2. SIMVASTATIN. [Concomitant]
     Active Substance: SIMVASTATIN
     Dosage: NI
  3. ACETYLSALICYLIC ACID [Concomitant]
     Active Substance: ASPIRIN
     Dosage: NI
  4. BUMETANIDE. [Concomitant]
     Active Substance: BUMETANIDE
     Dosage: NI
  5. PANTOPRAZOLE SODIUM SESQUIHYDRATE [Concomitant]
     Active Substance: PANTOPRAZOLE SODIUM
     Dosage: NI
  6. LONSURF [Suspect]
     Active Substance: TIPIRACIL HYDROCHLORIDE\TRIFLURIDINE
     Route: 048
     Dates: start: 20160209, end: 20160614
  7. CARVEDILOL. [Concomitant]
     Active Substance: CARVEDILOL
     Dosage: NI
  8. ENALAPRIL MALEATE. [Concomitant]
     Active Substance: ENALAPRIL MALEATE
     Dosage: NI
  9. METFORMIN HYDROCHLORIDE. [Concomitant]
     Active Substance: METFORMIN HYDROCHLORIDE
     Dosage: NI
  10. COLECALCIFEROL/CALCIUM CARBONATE [Concomitant]
     Dosage: NI
  11. PHENYTOIN SODIUM. [Concomitant]
     Active Substance: PHENYTOIN SODIUM
     Dosage: NI
  12. SERTRALINE HYDROCHLORIDE. [Concomitant]
     Active Substance: SERTRALINE HYDROCHLORIDE
     Dosage: NI
  13. WARFARIN SODIUM. [Concomitant]
     Active Substance: WARFARIN SODIUM
     Dosage: NI
  14. CILOSTAZOL. [Concomitant]
     Active Substance: CILOSTAZOL
     Dosage: NI
  15. IRON [Concomitant]
     Active Substance: IRON
     Dosage: NI
  16. LANTUS [Concomitant]
     Active Substance: INSULIN GLARGINE
     Dosage: NI
  17. MAGNESIUM [Concomitant]
     Active Substance: MAGNESIUM
     Dosage: NI

REACTIONS (1)
  - Disease progression [Fatal]

NARRATIVE: CASE EVENT DATE: 20160701
